FAERS Safety Report 10551469 (Version 1)
Quarter: 2014Q4

REPORT INFORMATION
  Report Type: Spontaneous
  Country: US (occurrence: None)
  Receive Date: 20141028
  Receipt Date: 20141028
  Transmission Date: 20150529
  Serious: Yes (Hospitalization)
  Sender: FDA-Public Use
  Company Number: None

PATIENT
  Age: 43 Year
  Sex: Female
  Weight: 60.3 kg

DRUGS (3)
  1. FLUCONAZOLE 150MG [Suspect]
     Active Substance: FLUCONAZOLE
     Indication: CANDIDA INFECTION
     Dosage: FLUCONAZOLE WEEKLY BY MOUTH
     Route: 048
     Dates: start: 20140904, end: 20140910
  2. XARELTO [Suspect]
     Active Substance: RIVAROXABAN
     Indication: FACTOR V LEIDEN MUTATION
     Dosage: XARELTO 20 MG DAILY BY MOUTH
     Route: 048
     Dates: start: 20131107, end: 20140910
  3. XARELTO [Suspect]
     Active Substance: RIVAROXABAN
     Indication: CEREBROVASCULAR ACCIDENT
     Dosage: XARELTO 20 MG DAILY BY MOUTH
     Route: 048
     Dates: start: 20131107, end: 20140910

REACTIONS (3)
  - Haemoglobin decreased [None]
  - Epistaxis [None]
  - Haematocrit decreased [None]

NARRATIVE: CASE EVENT DATE: 20140910
